FAERS Safety Report 17165726 (Version 1)
Quarter: 2019Q4

REPORT INFORMATION
  Report Type: Spontaneous
  Country: US (occurrence: US)
  Receive Date: 20191217
  Receipt Date: 20191217
  Transmission Date: 20200122
  Serious: Yes (Other)
  Sender: FDA-Public Use
  Company Number: US-PFIZER INC-2019405020

PATIENT
  Age: 58 Year
  Sex: Male
  Weight: 78.47 kg

DRUGS (3)
  1. LYRICA [Suspect]
     Active Substance: PREGABALIN
     Indication: BRAIN INJURY
     Dosage: UNK, 1X/DAY
     Dates: start: 2009
  2. LYRICA [Suspect]
     Active Substance: PREGABALIN
     Dosage: 150 MG, DAILY
     Route: 048
  3. PREGABALIN. [Suspect]
     Active Substance: PREGABALIN
     Dosage: 150 MG, DAILY
     Route: 048

REACTIONS (3)
  - Upper limb fracture [Unknown]
  - Product use in unapproved indication [Unknown]
  - Off label use [Unknown]
